FAERS Safety Report 5093820-4 (Version None)
Quarter: 2006Q3

REPORT INFORMATION
  Report Type: 
  Country: None (occurrence: None)
  Receive Date: 20060829
  Receipt Date: 20060829
  Transmission Date: 20061208
  Serious: Yes (Hospitalization)
  Sender: FDA-Public Use
  Company Number: None

PATIENT
  Sex: Male
  Weight: 84.5 kg

DRUGS (7)
  1. GLIADEL [Suspect]
     Indication: GLIOBLASTOMA MULTIFORME
     Dosage: 7.7 MG PER WAFER ONCE IV
     Route: 042
     Dates: start: 20060719
  2. 06-BENZYLGUANINE (06BG) [Suspect]
     Indication: GLIOBLASTOMA MULTIFORME
     Dosage: 30 MG/M2 INFUSION X 5 DAYS IV
     Route: 042
     Dates: start: 20060719, end: 20060723
  3. CARBATROL [Concomitant]
  4. ZANTAC [Concomitant]
  5. HYDROCHLOROTHIAZIDE [Concomitant]
  6. SODIUM CHLORIDE [Concomitant]
  7. DECADRON [Concomitant]

REACTIONS (16)
  - ASTHENIA [None]
  - BACTERIA BLOOD IDENTIFIED [None]
  - COGNITIVE DISORDER [None]
  - DIZZINESS [None]
  - DRUG LEVEL DECREASED [None]
  - FEELING ABNORMAL [None]
  - GENERAL PHYSICAL HEALTH DETERIORATION [None]
  - HYPONATRAEMIA [None]
  - LABORATORY TEST INTERFERENCE [None]
  - LACK OF SPONTANEOUS SPEECH [None]
  - MENTAL STATUS CHANGES [None]
  - NUCLEAR MAGNETIC RESONANCE IMAGING BRAIN ABNORMAL [None]
  - ORAL INTAKE REDUCED [None]
  - PYREXIA [None]
  - SOMNOLENCE [None]
  - STAPHYLOCOCCAL INFECTION [None]
